FAERS Safety Report 13209322 (Version 1)
Quarter: 2017Q1

REPORT INFORMATION
  Report Type: Spontaneous
  Country: HR (occurrence: HR)
  Receive Date: 20170209
  Receipt Date: 20170209
  Transmission Date: 20170428
  Serious: Yes (Hospitalization, Other)
  Sender: FDA-Public Use
  Company Number: HR-ELI_LILLY_AND_COMPANY-HR201702000323

PATIENT
  Age: 41 Year
  Sex: Male

DRUGS (6)
  1. OLANZAPINE. [Suspect]
     Active Substance: OLANZAPINE
     Indication: SCHIZOPHRENIA
     Dosage: 300 MG, UNK
     Route: 030
     Dates: start: 20141016, end: 20160701
  2. DIAZEPAM. [Concomitant]
     Active Substance: DIAZEPAM
  3. MODITEN                            /00000602/ [Concomitant]
     Active Substance: FLUPHENAZINE HYDROCHLORIDE
  4. QUETIAPINUM [Concomitant]
     Dosage: 5 MG, UNK
  5. QUETIAPINUM [Concomitant]
     Dosage: 150 MG, UNK
  6. LAMOTRIGIN [Concomitant]
     Active Substance: LAMOTRIGINE

REACTIONS (5)
  - Drug level above therapeutic [Unknown]
  - Abnormal sleep-related event [Recovered/Resolved]
  - Dysarthria [Recovered/Resolved]
  - Sedation [Recovered/Resolved]
  - Psychomotor retardation [Recovered/Resolved]

NARRATIVE: CASE EVENT DATE: 20160701
